FAERS Safety Report 7694781-1 (Version None)
Quarter: 2011Q3

REPORT INFORMATION
  Report Type: 
  Country: None (occurrence: None)
  Receive Date: 20110816
  Receipt Date: 20110803
  Transmission Date: 20111222
  Serious: Yes (Other)
  Sender: FDA-Public Use
  Company Number: MC201100321

PATIENT
  Age: 53 Year
  Sex: Male
  Weight: 63.5 kg

DRUGS (3)
  1. ANGIOMAX [Suspect]
     Indication: PERCUTANEOUS CORONARY INTERVENTION
     Dosage: 0.75 MG/KG, BOLUS, FEM ACCESS PCI
     Route: 040
     Dates: start: 20110531, end: 20110531
  2. FENTANYL [Suspect]
     Indication: SEDATION
     Dosage: 50 UG, SINGLE, INTRAVENOUS
     Route: 042
     Dates: start: 20110531, end: 20110531
  3. VERSED [Suspect]
     Indication: SEDATION
     Dosage: 2 MG, SINGLE, INTRAVENOUS
     Route: 042
     Dates: start: 20110531, end: 20110531

REACTIONS (6)
  - CHEST PAIN [None]
  - RESPIRATORY ARREST [None]
  - TROPONIN INCREASED [None]
  - ELECTROCARDIOGRAM ST-T CHANGE [None]
  - THROMBOSIS IN DEVICE [None]
  - EJECTION FRACTION DECREASED [None]
